FAERS Safety Report 19690575 (Version 1)
Quarter: 2021Q3

REPORT INFORMATION
  Report Type: Spontaneous
  Country: US (occurrence: US)
  Receive Date: 20210812
  Receipt Date: 20210812
  Transmission Date: 20211014
  Serious: Yes (Other)
  Sender: FDA-Public Use
  Company Number: US-ALK-ABELLO A/S-2021AA003152

PATIENT

DRUGS (8)
  1. ODACTRA [Suspect]
     Active Substance: DERMATOPHAGOIDES FARINAE\DERMATOPHAGOIDES PTERONYSSINUS
     Indication: DUST ALLERGY
     Dosage: 12 SQ?HDM
     Route: 060
     Dates: start: 20200920, end: 20201017
  2. ESTRADIOL. [Concomitant]
     Active Substance: ESTRADIOL
  3. MONTELUKAST [Concomitant]
     Active Substance: MONTELUKAST SODIUM
  4. CLARITIN [Concomitant]
     Active Substance: LORATADINE
  5. PROGESTERONE. [Concomitant]
     Active Substance: PROGESTERONE
  6. LEVOTHYROXINE. [Concomitant]
     Active Substance: LEVOTHYROXINE
  7. LAMICTAL [Concomitant]
     Active Substance: LAMOTRIGINE
  8. VITAMIN D                          /00107901/ [Concomitant]
     Active Substance: ERGOCALCIFEROL

REACTIONS (2)
  - Expired product administered [Recovered/Resolved]
  - Oesophagitis [Recovered/Resolved]

NARRATIVE: CASE EVENT DATE: 20201016
